FAERS Safety Report 13330905 (Version 2)
Quarter: 2019Q1

REPORT INFORMATION
  Report Type: Report from Study
  Country: IT (occurrence: IT)
  Receive Date: 20170314
  Receipt Date: 20190101
  Transmission Date: 20190417
  Serious: Yes (Hospitalization)
  Sender: FDA-Public Use
  Company Number: IT-INDICUS PHARMA-000481

PATIENT
  Age: 76 Year
  Sex: Male
  Weight: 72 kg

DRUGS (9)
  1. METFORMIN [Suspect]
     Active Substance: METFORMIN HYDROCHLORIDE
     Indication: TYPE 2 DIABETES MELLITUS
  2. GLIMEPIRIDE. [Concomitant]
     Active Substance: GLIMEPIRIDE
     Indication: TYPE 2 DIABETES MELLITUS
  3. FUROSEMIDE. [Concomitant]
     Active Substance: FUROSEMIDE
  4. RAMIPRIL. [Concomitant]
     Active Substance: RAMIPRIL
  5. ATORVASTATIN [Concomitant]
     Active Substance: ATORVASTATIN
  6. BISOPROLOL [Concomitant]
     Active Substance: BISOPROLOL
  7. LANSOPRAZOLE. [Concomitant]
     Active Substance: LANSOPRAZOLE
  8. ASPIRIN. [Concomitant]
     Active Substance: ASPIRIN
  9. FEBUXOSTAT. [Concomitant]
     Active Substance: FEBUXOSTAT

REACTIONS (3)
  - Acute kidney injury [Recovered/Resolved]
  - Toxicity to various agents [Unknown]
  - Lactic acidosis [Recovered/Resolved]
